FAERS Safety Report 10404425 (Version 1)
Quarter: 2014Q1

REPORT INFORMATION
  Report Type: Spontaneous
  Country: US (occurrence: None)
  Receive Date: 20140214
  Receipt Date: 20140214
  Transmission Date: 20141002
  Serious: No
  Sender: FDA-Public Use
  Company Number: A-NJ2013-91920

PATIENT
  Age: 78 Year
  Sex: Female

DRUGS (2)
  1. OPSUMIT (MACITENTAN) [Suspect]
     Indication: PULMONARY ARTERIAL HYPERTENSION
     Route: 048
     Dates: start: 20131109, end: 20131123
  2. REVATIO (SILDENAFIL CITRATE) [Concomitant]

REACTIONS (6)
  - Palpitations [None]
  - Migraine [None]
  - Dizziness [None]
  - Nausea [None]
  - Headache [None]
  - Presyncope [None]
